FAERS Safety Report 4559730-3 (Version None)
Quarter: 2005Q1

REPORT INFORMATION
  Report Type: 
  Country: None (occurrence: None)
  Receive Date: 20050114
  Receipt Date: 20040216
  Transmission Date: 20050727
  Serious: Yes (Other)
  Sender: FDA-Public Use
  Company Number: BDI-005841

PATIENT
  Age: 56 Year
  Sex: Female

DRUGS (2)
  1. PROHANCE [Suspect]
     Dosage: 34 ML ONCE IV
     Route: 042
     Dates: start: 20040213, end: 20040213
  2. ATIVAN [Suspect]
     Dosage: SY
     Dates: start: 20040213, end: 20040213

REACTIONS (3)
  - CYANOSIS [None]
  - OXYGEN SATURATION DECREASED [None]
  - RESPIRATORY DEPRESSION [None]
